FAERS Safety Report 10798961 (Version 2)
Quarter: 2015Q1

REPORT INFORMATION
  Report Type: Spontaneous
  Country: US (occurrence: US)
  Receive Date: 20150216
  Receipt Date: 20150216
  Transmission Date: 20150721
  Serious: No
  Sender: FDA-Public Use
  Company Number: US-ALLERGAN-1406437US

PATIENT
  Age: 77 Year
  Sex: Male

DRUGS (5)
  1. SYSTANE (HYPROMELLOSE 2910 (4000 MPA.S)) [Concomitant]
     Active Substance: HYPROMELLOSE 2910 (4000 MPA.S)
     Indication: EYE LUBRICATION THERAPY
     Dosage: UNK
  2. RESTASIS [Suspect]
     Active Substance: CYCLOSPORINE
     Indication: DRY EYE
     Dosage: 2 GTT, BID
     Route: 047
     Dates: start: 201401, end: 201402
  3. REFRESH [Concomitant]
     Active Substance: UNSPECIFIED INGREDIENT
     Indication: EYE LUBRICATION THERAPY
     Dosage: UNK
  4. PROLENZA [Concomitant]
     Indication: MACULAR OEDEMA
     Dosage: 1 GTT, QD
     Route: 047
  5. SIMBRINZA [Concomitant]
     Active Substance: BRIMONIDINE TARTRATE\BRINZOLAMIDE
     Indication: MACULAR OEDEMA
     Dosage: 2 GTT, BID
     Route: 047

REACTIONS (1)
  - Corneal deposits [Unknown]

NARRATIVE: CASE EVENT DATE: 20140310
